FAERS Safety Report 10276186 (Version 1)
Quarter: 2014Q3

REPORT INFORMATION
  Report Type: Spontaneous
  Country: US (occurrence: None)
  Receive Date: 20140701
  Receipt Date: 20140701
  Transmission Date: 20150326
  Serious: Yes (Hospitalization)
  Sender: FDA-Public Use
  Company Number: None

PATIENT
  Age: 67 Year
  Sex: Male
  Weight: 59.2 kg

DRUGS (1)
  1. CEFAZOLIN [Suspect]
     Active Substance: CEFAZOLIN
     Indication: ANTIBIOTIC PROPHYLAXIS
     Dates: start: 20140402, end: 20140402

REACTIONS (13)
  - Convulsion [None]
  - Nausea [None]
  - Chest pain [None]
  - Dyspnoea [None]
  - Diarrhoea [None]
  - Lacrimation increased [None]
  - Adverse drug reaction [None]
  - Loss of consciousness [None]
  - Sedation [None]
  - Vomiting [None]
  - Dry mouth [None]
  - Chronic obstructive pulmonary disease [None]
  - Rash [None]

NARRATIVE: CASE EVENT DATE: 20140402
